FAERS Safety Report 20770608 (Version 1)
Quarter: 2022Q2

REPORT INFORMATION
  Report Type: Spontaneous
  Country: US (occurrence: None)
  Receive Date: 20220429
  Receipt Date: 20220429
  Transmission Date: 20220721
  Serious: Yes (Other)
  Sender: FDA-Public Use
  Company Number: None

PATIENT
  Age: 68 Year
  Sex: Female

DRUGS (5)
  1. EMGALITY [Suspect]
     Active Substance: GALCANEZUMAB-GNLM
     Indication: Migraine
     Dosage: OTHER FREQUENCY : ONCE MONTHLY;?
     Route: 058
  2. align 4 mg [Concomitant]
  3. fibercon 625 mg [Concomitant]
  4. vitamin d 1000 units [Concomitant]
  5. MIRALAX [Concomitant]
     Active Substance: POLYETHYLENE GLYCOL 3350

REACTIONS (2)
  - Injection site warmth [None]
  - Injection site urticaria [None]

NARRATIVE: CASE EVENT DATE: 20220101
